FAERS Safety Report 5665598-4 (Version None)
Quarter: 2008Q1

REPORT INFORMATION
  Report Type: 
  Country: None (occurrence: None)
  Receive Date: 20080314
  Receipt Date: 20071211
  Transmission Date: 20080703
  Serious: No
  Sender: FDA-Public Use
  Company Number: US-ABBOTT-07P-163-0428934-00

PATIENT
  Sex: Male
  Weight: 119.1 kg

DRUGS (4)
  1. HUMIRA [Suspect]
     Indication: PSORIATIC ARTHROPATHY
     Route: 058
     Dates: start: 20071014, end: 20071104
  2. HUMIRA [Suspect]
     Route: 058
     Dates: start: 20071104, end: 20071209
  3. HUMIRA [Suspect]
     Dosage: PEN
     Route: 058
     Dates: start: 20071209
  4. HUMIRA [Suspect]
     Indication: PSORIATIC ARTHROPATHY
     Dates: start: 20071209

REACTIONS (4)
  - INJECTION SITE PAIN [None]
  - PRURITUS [None]
  - PSORIASIS [None]
  - RASH GENERALISED [None]
